FAERS Safety Report 4403402-2 (Version None)
Quarter: 2004Q3

REPORT INFORMATION
  Report Type: 
  Country: None (occurrence: None)
  Receive Date: 20040715
  Receipt Date: 20040707
  Transmission Date: 20050211
  Serious: Yes (Death)
  Sender: FDA-Public Use
  Company Number: 163-20785-04060110(0)

PATIENT
  Age: 82 Year
  Sex: Female

DRUGS (1)
  1. THALOMID [Suspect]
     Indication: RENAL CELL CARCINOMA STAGE UNSPECIFIED
     Dosage: 50 MG, DAILY, ORAL
     Route: 048
     Dates: start: 20040317, end: 20040101

REACTIONS (3)
  - CARDIO-RESPIRATORY ARREST [None]
  - DISEASE PROGRESSION [None]
  - RENAL CELL CARCINOMA STAGE UNSPECIFIED [None]
